FAERS Safety Report 7346850-3 (Version None)
Quarter: 2011Q1

REPORT INFORMATION
  Report Type: 
  Country: None (occurrence: None)
  Receive Date: 20110302
  Receipt Date: 20110224
  Transmission Date: 20110831
  Serious: Yes (Death)
  Sender: FDA-Public Use
  Company Number: 2011022888

PATIENT
  Age: 43 Year
  Sex: Male
  Weight: 80 kg

DRUGS (1)
  1. FRAGMIN [Suspect]
     Indication: THROMBOSIS PROPHYLAXIS
     Dosage: 5000 IU, 1XDAY,  SUBCUTANEOUS
     Route: 058
     Dates: start: 20101220

REACTIONS (4)
  - PULMONARY EMBOLISM [None]
  - SUDDEN DEATH [None]
  - THERAPEUTIC RESPONSE DECREASED [None]
  - DEEP VEIN THROMBOSIS [None]
